FAERS Safety Report 25811353 (Version 1)
Quarter: 2025Q3

REPORT INFORMATION
  Report Type: Spontaneous
  Country: US (occurrence: US)
  Receive Date: 20250917
  Receipt Date: 20250917
  Transmission Date: 20251020
  Serious: No
  Sender: BRAEBURN PHARMACEUTICALS
  Company Number: US-BRAEBURN PHARMACEUTICALS-US-BRA-25-000672

PATIENT
  Sex: Female

DRUGS (3)
  1. BRIXADI [Suspect]
     Active Substance: BUPRENORPHINE
     Indication: Drug abuse
     Dosage: 32 MILLIGRAM, QW
     Route: 058
     Dates: start: 20250528
  2. BUSPIRONE [Concomitant]
     Active Substance: BUSPIRONE HYDROCHLORIDE
     Indication: Product used for unknown indication
     Route: 065
  3. TRILEPTAL [Concomitant]
     Active Substance: OXCARBAZEPINE
     Indication: Product used for unknown indication
     Route: 065

REACTIONS (1)
  - Injection site reaction [Not Recovered/Not Resolved]

NARRATIVE: CASE EVENT DATE: 20250101
